FAERS Safety Report 6093646-9 (Version None)
Quarter: 2009Q1

REPORT INFORMATION
  Report Type: 
  Country: None (occurrence: None)
  Receive Date: 20090219
  Receipt Date: 20081024
  Transmission Date: 20090719
  Serious: No
  Sender: FDA-Public Use
  Company Number: WAES 0810USA04628

PATIENT
  Sex: Female
  Weight: 74.3899 kg

DRUGS (6)
  1. JANUVIA [Suspect]
     Indication: DIABETES MELLITUS
     Dosage: 100 MG/DAILY/PO
     Route: 048
     Dates: start: 20081010
  2. LANOXIN [Concomitant]
  3. MACROBID [Concomitant]
  4. PREVACID [Concomitant]
  5. QUESTRAN [Concomitant]
  6. THYROXIN [Concomitant]

REACTIONS (8)
  - ANXIETY [None]
  - DRUG INEFFECTIVE [None]
  - FEELING ABNORMAL [None]
  - LIP SWELLING [None]
  - RASH [None]
  - SWELLING [None]
  - WEIGHT DECREASED [None]
  - WEIGHT INCREASED [None]
